FAERS Safety Report 16298923 (Version 1)
Quarter: 2019Q2

REPORT INFORMATION
  Report Type: Spontaneous
  Country: US (occurrence: US)
  Receive Date: 20190510
  Receipt Date: 20190510
  Transmission Date: 20190711
  Serious: Yes (Other)
  Sender: FDA-Public Use
  Company Number: US-PFIZER INC-2019194393

PATIENT
  Age: 58 Year
  Sex: Male
  Weight: 95 kg

DRUGS (1)
  1. CAVERJECT [Suspect]
     Active Substance: ALPROSTADIL
     Indication: SEXUAL DYSFUNCTION
     Dosage: 20 MG, UNK (20MG, NO MORE THAN THREE TIMES A WEEK)/ ( SINGLE DOSE VIALS IN EACH PACKAGE)

REACTIONS (3)
  - Retinopathy solar [Unknown]
  - Blindness [Unknown]
  - Condition aggravated [Unknown]
